FAERS Safety Report 7409212-6 (Version None)
Quarter: 2011Q2

REPORT INFORMATION
  Report Type: 
  Country: None (occurrence: None)
  Receive Date: 20110412
  Receipt Date: 20110330
  Transmission Date: 20111010
  Serious: Yes (Other)
  Sender: FDA-Public Use
  Company Number: US-ELI_LILLY_AND_COMPANY-US201007007033

PATIENT
  Sex: Female

DRUGS (18)
  1. SEROQUEL [Concomitant]
     Dosage: 200 MG, EACH EVENING
  2. HYDROCORTISONE [Concomitant]
     Dosage: 0.5 DF, TID
  3. CYMBALTA [Concomitant]
     Dosage: 60 MG, BID
  4. METOPROLOL TARTRATE [Concomitant]
     Dosage: 100 MG, BID
  5. NAPROXEN [Concomitant]
     Dosage: 500 MG, BID
  6. PERCOCET [Concomitant]
     Indication: PAIN
     Dosage: 325 MG, PRN
  7. LISINOPRIL [Concomitant]
     Dosage: 12.5 MG, QD
  8. FLUDROCORTISON [Concomitant]
     Dosage: 1 MG, QD
  9. BACLOFEN [Concomitant]
     Dosage: 20 MG, TID
  10. XANAX [Concomitant]
     Dosage: 0.5 MG, BID
  11. LIPITOR [Concomitant]
     Dosage: 40 MG, QD
  12. ASPIRIN [Concomitant]
     Dosage: 1 DF, EACH EVENING
  13. FORTEO [Suspect]
     Dosage: 20 UG, QD
  14. K-DUR [Concomitant]
     Dosage: 20 MG, BID
  15. FORTEO [Suspect]
     Indication: OSTEOPOROSIS
     Dosage: 20 UG, QD
     Dates: start: 20100501
  16. HYDRALAZINE [Concomitant]
     Dosage: 25 MG, BID
  17. ACTOS [Concomitant]
     Dosage: 30 MG, QD
  18. BUMEX [Concomitant]
     Dosage: 1 MG, QD

REACTIONS (18)
  - PARAESTHESIA [None]
  - BLISTER [None]
  - WEIGHT INCREASED [None]
  - HYPOTHALAMO-PITUITARY DISORDER [None]
  - BLOOD CORTICOTROPHIN INCREASED [None]
  - FALL [None]
  - ARTHRALGIA [None]
  - FEELING COLD [None]
  - HAIR GROWTH ABNORMAL [None]
  - FEELING ABNORMAL [None]
  - TREMOR [None]
  - LOSS OF CONSCIOUSNESS [None]
  - BLOOD PRESSURE DECREASED [None]
  - ADDISON'S DISEASE [None]
  - STAPHYLOCOCCAL SKIN INFECTION [None]
  - THYROID DISORDER [None]
  - ADRENAL DISORDER [None]
  - FLUID RETENTION [None]
